FAERS Safety Report 9447453 (Version 1)
Quarter: 2013Q3

REPORT INFORMATION
  Report Type: Spontaneous
  Country: US (occurrence: US)
  Receive Date: 20130808
  Receipt Date: 20130808
  Transmission Date: 20140515
  Serious: No
  Sender: FDA-Public Use
  Company Number: US-PFIZER INC-2013228546

PATIENT
  Age: 54 Year
  Sex: Female
  Weight: 62.59 kg

DRUGS (1)
  1. ARTHROTEC [Suspect]
     Indication: TENDON DISORDER
     Dosage: 0.2 MG/ 75 MG, ONCE A DAY
     Route: 048
     Dates: end: 2013

REACTIONS (1)
  - Gastric disorder [Unknown]
